FAERS Safety Report 24625801 (Version 1)
Quarter: 2024Q4

REPORT INFORMATION
  Report Type: Spontaneous
  Country: US (occurrence: US)
  Receive Date: 20241115
  Receipt Date: 20241115
  Transmission Date: 20250114
  Serious: No
  Sender: ANI
  Company Number: US-ANIPHARMA-2024-US-048021

PATIENT
  Sex: Female

DRUGS (5)
  1. CORTICOTROPIN [Suspect]
     Active Substance: CORTICOTROPIN
     Indication: Multiple sclerosis
     Dosage: INJECT 80 UNITS (1ML) SUBCUTANEOUSLY ONCE DAILY FOR 2 TO 3 WEEKS AS  DIRECTED
     Route: 058
  2. B12 [Concomitant]
  3. MELATONIN [Concomitant]
     Active Substance: MELATONIN
  4. OCREVUS [Concomitant]
     Active Substance: OCRELIZUMAB
  5. VITAMIN D3 [Concomitant]
     Active Substance: CHOLECALCIFEROL

REACTIONS (10)
  - Injection site reaction [Unknown]
  - Feeling abnormal [Unknown]
  - Vision blurred [Unknown]
  - Hot flush [Unknown]
  - Feeling jittery [Unknown]
  - Anxiety [Unknown]
  - Drug ineffective [Unknown]
  - Back pain [Unknown]
  - Hyperhidrosis [Unknown]
  - Ill-defined disorder [Unknown]
